FAERS Safety Report 9528088 (Version 1)
Quarter: 2013Q1

REPORT INFORMATION
  Report Type: Spontaneous
  Country: US (occurrence: None)
  Receive Date: 20130313
  Receipt Date: 20130313
  Transmission Date: 20140127
  Serious: No
  Sender: FDA-Public Use
  Company Number: 1000029657

PATIENT
  Age: 53 Year
  Sex: Female

DRUGS (2)
  1. SAVELLA [Suspect]
     Indication: DEPRESSION
     Dosage: 6.25 MG (6.25 MG,1 IN 1 D),ORAL
     Route: 048
     Dates: start: 20120403
  2. LEVOXYL (LEVOTHYROXINE SODIUM) (LEVOTHYROXINE SODIUM) [Concomitant]

REACTIONS (2)
  - Nausea [None]
  - Off label use [None]
